FAERS Safety Report 8984004 (Version 1)
Quarter: 2012Q4

REPORT INFORMATION
  Report Type: Spontaneous
  Country: US (occurrence: None)
  Receive Date: 20121218
  Receipt Date: 20121218
  Transmission Date: 20130627
  Serious: Yes (Other)
  Sender: FDA-Public Use
  Company Number: None

PATIENT
  Age: 48 Year
  Sex: Male
  Weight: 80 kg

DRUGS (1)
  1. VYVANSE 70 MG SHIRE [Suspect]
     Indication: ADHD
     Route: 048
     Dates: start: 20110915, end: 20120907

REACTIONS (17)
  - Hostility [None]
  - Aggression [None]
  - Bipolar disorder [None]
  - Mania [None]
  - Insomnia [None]
  - Psychomotor hyperactivity [None]
  - Suspiciousness [None]
  - Paranoia [None]
  - Anxiety [None]
  - Weight decreased [None]
  - Fungal infection [None]
  - Raynaud^s phenomenon [None]
  - Rash [None]
  - Skin disorder [None]
  - Impaired healing [None]
  - Drug abuse [None]
  - Drug dependence [None]
